FAERS Safety Report 5645086-1 (Version None)
Quarter: 2008Q1

REPORT INFORMATION
  Report Type: 
  Country: None (occurrence: None)
  Receive Date: 20080229
  Receipt Date: 20071030
  Transmission Date: 20080703
  Serious: No
  Sender: FDA-Public Use
  Company Number: A0690552A

PATIENT
  Age: 80 Year
  Sex: Female

DRUGS (7)
  1. VALTREX [Suspect]
     Route: 048
  2. TIMOLOL MALEATE [Concomitant]
  3. XALATAN [Concomitant]
  4. UNKNOWN MEDICATION [Concomitant]
  5. ALOCRIL [Concomitant]
  6. VITAMIN [Concomitant]
  7. ASPIRIN [Concomitant]

REACTIONS (3)
  - DIARRHOEA [None]
  - DRUG INEFFECTIVE [None]
  - STOMACH DISCOMFORT [None]
